FAERS Safety Report 5151946-0 (Version None)
Quarter: 2006Q4

REPORT INFORMATION
  Report Type: 
  Country: None (occurrence: None)
  Receive Date: 20061107
  Receipt Date: 20061023
  Transmission Date: 20070319
  Serious: Yes (Death)
  Sender: FDA-Public Use
  Company Number: B0443254A

PATIENT
  Age: 40 Year
  Sex: 0

DRUGS (4)
  1. WELLBUTRIN [Suspect]
     Dosage: UNK/ UNKNOWN/ ORAL
     Route: 048
  2. TRAZODONE HCL [Suspect]
     Dosage: UNK/ UNKNOWN/ ORAL
     Route: 048
  3. METHAMPHETAMINE HYDROCHLORIDE [Suspect]
     Dosage: UNK/ UNKNOWN/ ORAL
     Route: 048
  4. UNKNOWN (FORMULATION UNKNOWN) (UNKNOWN) [Suspect]
     Dosage: UNK/ UNKNOWN/ ORAL
     Route: 048

REACTIONS (1)
  - COMPLETED SUICIDE [None]
